FAERS Safety Report 5192665-4 (Version None)
Quarter: 2006Q4

REPORT INFORMATION
  Report Type: 
  Country: None (occurrence: None)
  Receive Date: 20061220
  Receipt Date: 20061208
  Transmission Date: 20070319
  Serious: Yes (Hospitalization)
  Sender: FDA-Public Use
  Company Number: 233754

PATIENT
  Age: 63 Year
  Sex: Male

DRUGS (4)
  1. AVASTIN [Suspect]
     Indication: RENAL CELL CARCINOMA STAGE UNSPECIFIED
     Dosage: 868 MG, Q2W, INTRAVENOUS
     Route: 042
     Dates: start: 20061116, end: 20061130
  2. ALDESLEUKIN [Suspect]
     Indication: RENAL CELL CARCINOMA STAGE UNSPECIFIED
     Dosage: 51.6 MU, Q8H,
     Dates: start: 20061130, end: 20061204
  3. LEVOFLOXACIN [Concomitant]
  4. RHINOCORT [Concomitant]

REACTIONS (7)
  - BLOOD CREATININE INCREASED [None]
  - DYSPHASIA [None]
  - MENTAL STATUS CHANGES [None]
  - PLATELET COUNT DECREASED [None]
  - PULMONARY EMBOLISM [None]
  - PYREXIA [None]
  - SINUS TACHYCARDIA [None]
